FAERS Safety Report 4852716-0 (Version None)
Quarter: 2005Q4

REPORT INFORMATION
  Report Type: 
  Country: None (occurrence: None)
  Receive Date: 20051213
  Receipt Date: 20051202
  Transmission Date: 20060501
  Serious: Yes (Other)
  Sender: FDA-Public Use
  Company Number: PHRM2005FR03141

PATIENT
  Age: 35 Year
  Sex: Male

DRUGS (2)
  1. PRIMPERAN INJ [Suspect]
     Dates: start: 20051201
  2. MIACALCIN [Suspect]
     Indication: COMPLEX REGIONAL PAIN SYNDROME
     Dosage: 50 IU, QD
     Dates: start: 20051201

REACTIONS (2)
  - PARAESTHESIA [None]
  - TRISMUS [None]
